FAERS Safety Report 17226885 (Version 3)
Quarter: 2020Q1

REPORT INFORMATION
  Report Type: Report from Study
  Country: CA (occurrence: CA)
  Receive Date: 20200102
  Receipt Date: 20200330
  Transmission Date: 20200409
  Serious: Yes (Hospitalization, Disabling, Other)
  Sender: FDA-Public Use
  Company Number: CA-BRISTOL-MYERS SQUIBB COMPANY-BMS-2017-038756

PATIENT
  Age: 67 Year
  Sex: Male

DRUGS (1)
  1. ABATACEPT [Suspect]
     Active Substance: ABATACEPT
     Indication: RHEUMATOID ARTHRITIS
     Dosage: 1000 MG, Q4WK
     Route: 042
     Dates: start: 20080818, end: 20191128

REACTIONS (15)
  - Sputum discoloured [Recovering/Resolving]
  - Cerebrovascular accident [Recovering/Resolving]
  - Dysphagia [Unknown]
  - Arthralgia [Not Recovered/Not Resolved]
  - Hemiplegia [Unknown]
  - Sciatica [Unknown]
  - Mobility decreased [Unknown]
  - Sinusitis [Recovered/Resolved with Sequelae]
  - Pyrexia [Recovering/Resolving]
  - Gait disturbance [Unknown]
  - Infection [Unknown]
  - Pain in extremity [Unknown]
  - Back pain [Recovered/Resolved with Sequelae]
  - Weight decreased [Unknown]
  - Blood pressure increased [Unknown]

NARRATIVE: CASE EVENT DATE: 20171011
